FAERS Safety Report 16437397 (Version 2)
Quarter: 2019Q2

REPORT INFORMATION
  Report Type: Spontaneous
  Country: FI (occurrence: FI)
  Receive Date: 20190615
  Receipt Date: 20190625
  Transmission Date: 20190711
  Serious: Yes (Other)
  Sender: FDA-Public Use
  Company Number: FI-ACCORD-133011

PATIENT
  Age: 65 Year
  Sex: Female

DRUGS (11)
  1. VINORELBINE [Suspect]
     Active Substance: VINORELBINE\VINORELBINE TARTRATE
     Indication: BREAST CANCER
     Dosage: DOSAGE FORM: UNSPECIFIED
     Route: 065
     Dates: end: 201811
  2. PERTUZUMAB. [Suspect]
     Active Substance: PERTUZUMAB
     Indication: BREAST CANCER
     Dosage: DOSAGE FORM: UNSPECIFIED
     Route: 065
     Dates: end: 201811
  3. ARIMIDEX [Suspect]
     Active Substance: ANASTROZOLE
     Indication: BREAST CANCER
     Dosage: DOSAGE FORM: UNSPECIFIED
     Route: 065
  4. CAELYX [Suspect]
     Active Substance: DOXORUBICIN HYDROCHLORIDE
     Indication: BREAST CANCER
     Route: 065
     Dates: end: 201811
  5. EXEMESTANE. [Suspect]
     Active Substance: EXEMESTANE
     Indication: BREAST CANCER
     Dosage: DOSAGE FORM: UNSPECIFIED
     Route: 065
     Dates: end: 201811
  6. DOCETAXEL. [Suspect]
     Active Substance: DOCETAXEL
     Indication: BREAST CANCER
     Dosage: DOSAGE FORM: UNSPECIFIED
     Route: 065
  7. PACLITAXEL/PACLITAXEL LIPOSOME [Suspect]
     Active Substance: PACLITAXEL
     Indication: BREAST CANCER
     Dosage: DOSAGE FORM: UNSPECIFIED
     Route: 065
     Dates: end: 201811
  8. TRASTUZUMAB/EMTANSINE [Suspect]
     Active Substance: ADO-TRASTUZUMAB EMTANSINE
     Indication: BREAST CANCER
     Dosage: DOSAGE FORM: UNSPECIFIED
     Route: 065
     Dates: end: 201811
  9. EPIRUBICIN [Suspect]
     Active Substance: EPIRUBICIN
     Indication: BREAST CANCER
     Route: 065
  10. FULVESTRANT. [Suspect]
     Active Substance: FULVESTRANT
     Indication: BREAST CANCER
     Dosage: DOSAGE FORM: UNSPECIFIED
     Route: 065
  11. ZOLEDRONIC ACID [Suspect]
     Active Substance: ZOLEDRONIC ACID
     Indication: BREAST CANCER
     Dosage: DOSAGE FORM: UNSPECIFIED
     Route: 065

REACTIONS (8)
  - Drug ineffective [Unknown]
  - Infection [Unknown]
  - Malignant neoplasm progression [Unknown]
  - Metastasis [Unknown]
  - Metastases to bone [Unknown]
  - Metastases to soft tissue [Unknown]
  - Breast cancer [Unknown]
  - Metastases to lung [Unknown]

NARRATIVE: CASE EVENT DATE: 201606
